FAERS Safety Report 9429529 (Version 2)
Quarter: 2013Q3

REPORT INFORMATION
  Report Type: Report from Study
  Country: US (occurrence: US)
  Receive Date: 20130730
  Receipt Date: 20130830
  Transmission Date: 20140515
  Serious: Yes (Hospitalization)
  Sender: FDA-Public Use
  Company Number: US-ACTELION-A-NJ2013-86153

PATIENT
  Age: 60 Year
  Sex: Male

DRUGS (5)
  1. TRACLEER [Suspect]
     Indication: PULMONARY ARTERIAL HYPERTENSION
     Dosage: 125 MG, BID
     Route: 048
     Dates: start: 2011, end: 201305
  2. VENTAVIS [Concomitant]
     Indication: PULMONARY ARTERIAL HYPERTENSION
     Route: 055
  3. ADCIRCA [Concomitant]
  4. COUMADIN [Concomitant]
  5. REMODULIN [Concomitant]

REACTIONS (5)
  - Multi-organ failure [Unknown]
  - Renal failure [Unknown]
  - Feeling abnormal [Recovered/Resolved]
  - Hepatic failure [Unknown]
  - Fluid retention [Recovering/Resolving]
